FAERS Safety Report 4928702-9 (Version None)
Quarter: 2006Q1

REPORT INFORMATION
  Report Type: 
  Country: None (occurrence: None)
  Receive Date: 20060227
  Receipt Date: 20060227
  Transmission Date: 20060701
  Serious: Yes (Hospitalization)
  Sender: FDA-Public Use
  Company Number: None

PATIENT
  Age: 87 Year
  Sex: Male

DRUGS (2)
  1. AMOXICILLIN + CLAVULANATE POTASSIUM [Suspect]
     Indication: BRONCHITIS
     Dosage: 1 TAB BID PO
     Route: 048
     Dates: start: 20060123, end: 20060131
  2. MOXIFLOXACIN 400 MG [Suspect]
     Indication: PNEUMONIA
     Dosage: 1 TAB Q 12 HRS PO
     Route: 048
     Dates: start: 20060131, end: 20060201

REACTIONS (1)
  - CLOSTRIDIUM COLITIS [None]
